FAERS Safety Report 4814417-4 (Version None)
Quarter: 2005Q4

REPORT INFORMATION
  Report Type: 
  Country: None (occurrence: None)
  Receive Date: 20051028
  Receipt Date: 20050818
  Transmission Date: 20060501
  Serious: Yes (Hospitalization, Other)
  Sender: FDA-Public Use
  Company Number: US-GLAXOSMITHKLINE-A0571446A

PATIENT
  Age: 60 Year
  Sex: Female
  Weight: 97.3 kg

DRUGS (8)
  1. ADVAIR DISKUS 100/50 [Suspect]
     Indication: CHRONIC OBSTRUCTIVE PULMONARY DISEASE
     Dosage: 1PUFF TWICE PER DAY
     Route: 055
     Dates: start: 20030101, end: 20050228
  2. NORVIR [Suspect]
     Indication: HIV INFECTION
     Dosage: 100MG PER DAY
     Route: 048
     Dates: start: 20040831
  3. SEROQUEL [Concomitant]
     Dosage: 200MG AT NIGHT
  4. AMBIEN [Concomitant]
     Dosage: 10MG AT NIGHT
  5. REYATAZ [Concomitant]
     Indication: HIV INFECTION
  6. TRIZIVIR [Concomitant]
     Indication: HIV INFECTION
     Dosage: 1TAB TWICE PER DAY
  7. ALBUTEROL [Concomitant]
     Indication: CHRONIC OBSTRUCTIVE PULMONARY DISEASE
     Dosage: 2PUFF AS REQUIRED
     Route: 055
  8. FOSAMAX [Concomitant]
     Indication: OSTEOPOROSIS
     Dosage: 70MG PER DAY
     Route: 048

REACTIONS (7)
  - ADRENAL INSUFFICIENCY [None]
  - CUSHING'S SYNDROME [None]
  - DEPRESSION [None]
  - DRUG INTERACTION [None]
  - ENCEPHALOPATHY [None]
  - PURPURA [None]
  - WEIGHT INCREASED [None]
